FAERS Safety Report 10169148 (Version 1)
Quarter: 2014Q2

REPORT INFORMATION
  Report Type: Spontaneous
  Country: US (occurrence: US)
  Receive Date: 20140513
  Receipt Date: 20140513
  Transmission Date: 20141212
  Serious: No
  Sender: FDA-Public Use
  Company Number: US-TARO-2014P1000460

PATIENT
  Age: 5 Year
  Sex: Female

DRUGS (1)
  1. CETIRIZINE HCL ORAL SOLUTION ALLERGY 1 MG/ML OTC [Suspect]
     Dates: start: 20140116

REACTIONS (2)
  - Rhinorrhoea [Unknown]
  - Drug ineffective [Unknown]
